FAERS Safety Report 5721587-2 (Version None)
Quarter: 2008Q2

REPORT INFORMATION
  Report Type: 
  Country: None (occurrence: None)
  Receive Date: 20080429
  Receipt Date: 20070313
  Transmission Date: 20081010
  Serious: No
  Sender: FDA-Public Use
  Company Number: US-ASTRAZENECA-2007UW04835

PATIENT
  Sex: Female

DRUGS (1)
  1. NEXIUM [Suspect]
     Indication: SMALL INTESTINE ULCER
     Route: 048
     Dates: start: 20070101

REACTIONS (6)
  - ABDOMINAL DISTENSION [None]
  - CHEST DISCOMFORT [None]
  - HEART RATE INCREASED [None]
  - JOINT SWELLING [None]
  - MALAISE [None]
  - PAIN [None]
